FAERS Safety Report 8132325-0 (Version None)
Quarter: 2012Q1

REPORT INFORMATION
  Report Type: 
  Country: None (occurrence: None)
  Receive Date: 20120213
  Receipt Date: 20120206
  Transmission Date: 20120608
  Serious: Yes (Hospitalization)
  Sender: FDA-Public Use
  Company Number: US-BAYER-2011-029329

PATIENT
  Age: 37 Year
  Sex: Female
  Weight: 113.38 kg

DRUGS (9)
  1. WOMEN'S MULTI [Concomitant]
     Dosage: UNK
     Dates: start: 20090202
  2. FISH OIL [Concomitant]
     Dosage: UNK
     Dates: start: 20090112
  3. YASMIN [Suspect]
     Indication: ACNE
     Dosage: UNK
     Dates: start: 20070601, end: 20090101
  4. LISINOPRIL [Concomitant]
     Indication: BLOOD PRESSURE INCREASED
     Dosage: UNK
     Dates: start: 20090201
  5. PAXIL [Concomitant]
     Indication: ANXIETY
     Dosage: UNK
     Dates: start: 20080101
  6. CITRUCEL [Concomitant]
     Dosage: UNK
     Dates: start: 20090112
  7. CITRUCEL [Concomitant]
     Dosage: UNK
     Dates: start: 20090202
  8. WOMEN'S MULTI [Concomitant]
     Dosage: UNK
     Dates: start: 20090112
  9. FISH OIL [Concomitant]
     Dosage: UNK
     Dates: start: 20090202

REACTIONS (9)
  - CHOLECYSTITIS [None]
  - GENERAL PHYSICAL HEALTH DETERIORATION [None]
  - PSYCHOLOGICAL TRAUMA [None]
  - CHOLELITHIASIS [None]
  - FEAR OF DISEASE [None]
  - INJURY [None]
  - ANXIETY [None]
  - ABDOMINAL PAIN UPPER [None]
  - EMOTIONAL DISTRESS [None]
